FAERS Safety Report 9475543 (Version 1)
Quarter: 2013Q3

REPORT INFORMATION
  Report Type: Spontaneous
  Country: US (occurrence: US)
  Receive Date: 20130826
  Receipt Date: 20130826
  Transmission Date: 20140515
  Serious: Yes (Other)
  Sender: FDA-Public Use
  Company Number: US-JNJFOC-20130807446

PATIENT
  Age: 52 Year
  Sex: Female
  Weight: 56.25 kg

DRUGS (1)
  1. BENADRYL [Suspect]
     Indication: FOOD ALLERGY
     Route: 048

REACTIONS (3)
  - Lip swelling [Unknown]
  - Respiratory arrest [Unknown]
  - Intentional drug misuse [Unknown]
